FAERS Safety Report 8402618-8 (Version None)
Quarter: 2012Q2

REPORT INFORMATION
  Report Type: 
  Country: None (occurrence: None)
  Receive Date: 20120601
  Receipt Date: 20120529
  Transmission Date: 20120825
  Serious: Yes (Hospitalization)
  Sender: FDA-Public Use
  Company Number: US-GILEAD-2012-0055086

PATIENT
  Sex: Female

DRUGS (2)
  1. REMODULIN [Concomitant]
  2. LETAIRIS [Suspect]
     Indication: PRODUCT USED FOR UNKNOWN INDICATION
     Dosage: 5 MG, UNK
     Route: 048
     Dates: start: 20120119, end: 20120529

REACTIONS (6)
  - THROAT IRRITATION [None]
  - VOMITING [None]
  - VISION BLURRED [None]
  - DYSPNOEA [None]
  - GAIT DISTURBANCE [None]
  - NAUSEA [None]
